FAERS Safety Report 15321747 (Version 6)
Quarter: 2019Q3

REPORT INFORMATION
  Report Type: Report from Study
  Country: US (occurrence: US)
  Receive Date: 20180827
  Receipt Date: 20190917
  Transmission Date: 20191004
  Serious: Yes (Hospitalization)
  Sender: FDA-Public Use
  Company Number: US-EISAI MEDICAL RESEARCH-EC-2018-042534

PATIENT
  Age: 62 Year
  Sex: Female

DRUGS (9)
  1. LENVIMA [Suspect]
     Active Substance: LENVATINIB
     Route: 048
     Dates: start: 2018, end: 201808
  2. LENVIMA [Suspect]
     Active Substance: LENVATINIB
     Indication: RENAL CANCER
     Route: 048
     Dates: start: 20180626, end: 2018
  3. HYDRALAZINE [Concomitant]
     Active Substance: HYDRALAZINE HYDROCHLORIDE
  4. LENVIMA [Suspect]
     Active Substance: LENVATINIB
     Route: 048
     Dates: start: 2018, end: 2019
  5. IRBESARTAN. [Concomitant]
     Active Substance: IRBESARTAN
  6. LENVIMA [Suspect]
     Active Substance: LENVATINIB
     Route: 048
     Dates: start: 2019
  7. LENVIMA [Suspect]
     Active Substance: LENVATINIB
     Dosage: REDUCED DOSE
     Route: 048
     Dates: start: 201808, end: 2018
  8. CLONIDINE. [Concomitant]
     Active Substance: CLONIDINE
  9. HCTZ [Concomitant]
     Active Substance: HYDROCHLOROTHIAZIDE

REACTIONS (17)
  - Vision blurred [Recovered/Resolved]
  - Blood urine present [Not Recovered/Not Resolved]
  - Diarrhoea [Recovered/Resolved]
  - Constipation [Not Recovered/Not Resolved]
  - Hypertension [Not Recovered/Not Resolved]
  - Pruritus [Recovered/Resolved]
  - Dizziness [Recovering/Resolving]
  - Contrast media reaction [Unknown]
  - Intestinal obstruction [Unknown]
  - Fatigue [Recovering/Resolving]
  - Renal disorder [Not Recovered/Not Resolved]
  - Headache [Recovered/Resolved]
  - Decreased appetite [Recovered/Resolved]
  - Proteinuria [Unknown]
  - Palmar-plantar erythrodysaesthesia syndrome [Not Recovered/Not Resolved]
  - Hypothyroidism [Unknown]
  - Oedema peripheral [Unknown]

NARRATIVE: CASE EVENT DATE: 2018
